FAERS Safety Report 4557816-0 (Version None)
Quarter: 2005Q1

REPORT INFORMATION
  Report Type: 
  Country: None (occurrence: None)
  Receive Date: 20050118
  Receipt Date: 20050114
  Transmission Date: 20050727
  Serious: Yes (Other)
  Sender: FDA-Public Use
  Company Number: TUK2005A00003

PATIENT
  Sex: Female

DRUGS (5)
  1. ACTOS [Suspect]
     Indication: DIABETES MELLITUS
     Dosage: 30 MG ORAL
     Route: 048
     Dates: start: 20040921
  2. INSULIN [Suspect]
     Indication: DIABETES MELLITUS
     Dosage: 12-36 UNIT INTRAMUSCULAR
     Route: 030
     Dates: start: 20040921, end: 20020101
  3. VALSARTAN [Concomitant]
  4. BECLOMETHASONE DIPROPIONATE [Concomitant]
  5. DOXAZOSIN [Concomitant]

REACTIONS (6)
  - CARDIAC FAILURE CONGESTIVE [None]
  - DRUG INTERACTION [None]
  - HYPERTENSION [None]
  - LETHARGY [None]
  - NASAL CONGESTION [None]
  - WEIGHT INCREASED [None]
